FAERS Safety Report 5201592-5 (Version None)
Quarter: 2007Q1

REPORT INFORMATION
  Report Type: 
  Country: None (occurrence: None)
  Receive Date: 20070108
  Receipt Date: 20061227
  Transmission Date: 20070707
  Serious: Yes (Hospitalization)
  Sender: FDA-Public Use
  Company Number: BE-PFIZER INC-2007001121

PATIENT
  Age: 87 Year
  Sex: Male

DRUGS (11)
  1. ATARAX [Suspect]
     Indication: ANXIETY
     Dosage: DAILY DOSE:25MG
     Route: 048
  2. MODOPAR [Suspect]
     Indication: PARKINSON'S DISEASE
     Dosage: TEXT:4 DF
     Route: 048
  3. VASTAREL [Suspect]
     Indication: MENIERE'S DISEASE
     Dosage: TEXT:1 DF
     Route: 048
  4. PAROXETINE HYDROCHLORIDE [Suspect]
     Indication: ANXIETY
     Dosage: TEXT:1 DF
     Route: 048
  5. ARICEPT [Suspect]
     Indication: DEMENTIA ALZHEIMER'S TYPE
     Dosage: TEXT:1 DF
     Route: 048
  6. AMIODARONE HCL [Concomitant]
  7. IMOVANE [Concomitant]
  8. TAHOR [Concomitant]
  9. PREVISCAN [Concomitant]
  10. LANZOR [Concomitant]
  11. OMIX [Concomitant]

REACTIONS (3)
  - CONFUSIONAL STATE [None]
  - DISORIENTATION [None]
  - HALLUCINATION [None]
